FAERS Safety Report 5865306-8 (Version None)
Quarter: 2008Q3

REPORT INFORMATION
  Report Type: 
  Country: None (occurrence: None)
  Receive Date: 20080829
  Receipt Date: 20080821
  Transmission Date: 20090109
  Serious: Yes (Other)
  Sender: FDA-Public Use
  Company Number: US-MERCK-0708USA04791

PATIENT
  Age: 78 Year
  Sex: Male

DRUGS (1)
  1. COSOPT [Suspect]
     Route: 047
     Dates: start: 20070819, end: 20070821

REACTIONS (5)
  - BALANCE DISORDER [None]
  - BLINDNESS [None]
  - DYSPNOEA [None]
  - OCULAR HYPERAEMIA [None]
  - VISION BLURRED [None]
